FAERS Safety Report 9584620 (Version 1)
Quarter: 2013Q4

REPORT INFORMATION
  Report Type: Spontaneous
  Country: US (occurrence: US)
  Receive Date: 20131002
  Receipt Date: 20131002
  Transmission Date: 20140711
  Serious: No
  Sender: FDA-Public Use
  Company Number: US-AMGEN-USASP2013054569

PATIENT
  Age: 69 Year
  Sex: Female

DRUGS (7)
  1. ENBREL [Suspect]
     Indication: PRODUCT USED FOR UNKNOWN INDICATION
     Dosage: 50 MG, ONCE A WEEK
     Route: 065
  2. XANAX [Concomitant]
     Dosage: 2 MG, UNK
  3. DIOVAN [Concomitant]
     Dosage: 160 MG, UNK
  4. TRAMADOL HCL [Concomitant]
     Dosage: 50 MG, UNK
  5. FISH OIL [Concomitant]
     Dosage: UNK
  6. CALCIUM [Concomitant]
     Dosage: CALCIUM 500, UNK
  7. ASPIRIN (E.C.) [Concomitant]
     Dosage: 81 MG, UNK

REACTIONS (1)
  - Wrong technique in drug usage process [Unknown]
